FAERS Safety Report 18495319 (Version 1)
Quarter: 2020Q4

REPORT INFORMATION
  Report Type: Spontaneous
  Country: US (occurrence: US)
  Receive Date: 20201111
  Receipt Date: 20201111
  Transmission Date: 20210114
  Serious: Yes (Death)
  Sender: FDA-Public Use
  Company Number: None

PATIENT
  Age: 24 Year
  Sex: Female
  Weight: 78.75 kg

DRUGS (2)
  1. MAKENA [Suspect]
     Active Substance: HYDROXYPROGESTERONE CAPROATE
     Indication: PREMATURE LABOUR
     Dates: start: 20160228, end: 20160327
  2. PRE-NATAL VITAMINS [Concomitant]

REACTIONS (4)
  - Exposure during pregnancy [None]
  - Foetal death [None]
  - Maternal drugs affecting foetus [None]
  - Foetal exposure during pregnancy [None]

NARRATIVE: CASE EVENT DATE: 20160331
